FAERS Safety Report 6453686-4 (Version None)
Quarter: 2009Q4

REPORT INFORMATION
  Report Type: 
  Country: None (occurrence: None)
  Receive Date: 20091124
  Receipt Date: 20091117
  Transmission Date: 20100525
  Serious: Yes (Life-Threatening, Hospitalization, Disabling, Other)
  Sender: FDA-Public Use
  Company Number: PHEH2009US03388

PATIENT
  Sex: Male

DRUGS (6)
  1. GLEEVEC [Suspect]
     Indication: CHRONIC MYELOID LEUKAEMIA
     Dosage: 400 MG, QD
     Route: 048
     Dates: start: 20050815
  2. GABAPENTIN [Concomitant]
     Dosage: 800 MG, QD
     Route: 048
  3. CIALIS [Concomitant]
     Indication: ERECTILE DYSFUNCTION
     Dosage: 20 MG, PRN
     Route: 048
  4. ULTRACET [Concomitant]
     Indication: PAIN
     Dosage: 1 TO 2 TABS Q 8 HOURS, PRN
     Route: 048
  5. AVINZA [Concomitant]
     Dosage: 30 MG, QD
     Route: 048
  6. PARACETAMOL W/TRAMADOL HYDROCHLORIDE [Concomitant]
     Indication: PAIN
     Dosage: 37.5/325 MG Q 8 HRS PRN PAIN
     Route: 048

REACTIONS (33)
  - ANGIOPLASTY [None]
  - ANTINUCLEAR ANTIBODY INCREASED [None]
  - AORTIC ARTERIOSCLEROSIS [None]
  - APHASIA [None]
  - ARTERIOVENOUS SHUNT OPERATION [None]
  - BALANCE DISORDER [None]
  - BASOPHIL COUNT INCREASED [None]
  - BLOOD CHLORIDE DECREASED [None]
  - BLOOD CREATININE INCREASED [None]
  - BLOOD GLUCOSE INCREASED [None]
  - CAROTID ARTERY OCCLUSION [None]
  - CAROTID ARTERY STENOSIS [None]
  - CAROTID ENDARTERECTOMY [None]
  - CEREBROVASCULAR ACCIDENT [None]
  - DYSARTHRIA [None]
  - FALL [None]
  - GAIT DISTURBANCE [None]
  - GLOMERULAR FILTRATION RATE DECREASED [None]
  - HAEMATOCRIT DECREASED [None]
  - HAEMOGLOBIN DECREASED [None]
  - HEMIPLEGIA [None]
  - ISCHAEMIC CEREBRAL INFARCTION [None]
  - LYMPHOCYTE COUNT DECREASED [None]
  - MITRAL VALVE INCOMPETENCE [None]
  - MUSCULAR WEAKNESS [None]
  - NEUTROPHIL COUNT INCREASED [None]
  - PERICARDIAL EFFUSION [None]
  - RED BLOOD CELL COUNT DECREASED [None]
  - SENSORY LOSS [None]
  - SPECIFIC GRAVITY URINE INCREASED [None]
  - TRICUSPID VALVE INCOMPETENCE [None]
  - VASCULAR CALCIFICATION [None]
  - VENTRICULAR HYPERTROPHY [None]
